FAERS Safety Report 10501591 (Version 1)
Quarter: 2014Q4

REPORT INFORMATION
  Report Type: Spontaneous
  Country: US (occurrence: None)
  Receive Date: 20141006
  Receipt Date: 20141006
  Transmission Date: 20150528
  Serious: Yes (Hospitalization)
  Sender: FDA-Public Use
  Company Number: None

PATIENT
  Age: 48 Year
  Sex: Female
  Weight: 73.94 kg

DRUGS (1)
  1. MIRTAZAPINE 15 MG MYLAN [Suspect]
     Active Substance: MIRTAZAPINE
     Indication: DEPRESSION
     Dosage: 1 PILL AT BEDTIME TAKEN BY MOUTH
     Route: 048
     Dates: start: 20140923, end: 20140930

REACTIONS (4)
  - Malaise [None]
  - Fall [None]
  - Seizure [None]
  - Laceration [None]

NARRATIVE: CASE EVENT DATE: 20141001
